FAERS Safety Report 6420932-2 (Version None)
Quarter: 2009Q4

REPORT INFORMATION
  Report Type: 
  Country: None (occurrence: None)
  Receive Date: 20091030
  Receipt Date: 20091021
  Transmission Date: 20100525
  Serious: Yes (Other)
  Sender: FDA-Public Use
  Company Number: FR-ASTRAZENECA-2009SE21922

PATIENT
  Age: 80 Year
  Sex: Female

DRUGS (4)
  1. CRESTOR [Suspect]
     Route: 048
     Dates: start: 20090401, end: 20090701
  2. OLMETEC [Concomitant]
     Route: 065
  3. LAROXYL [Concomitant]
     Route: 065
  4. TEMESTA [Concomitant]
     Route: 065

REACTIONS (1)
  - AUTOIMMUNE HEPATITIS [None]
